FAERS Safety Report 15363377 (Version 2)
Quarter: 2018Q3

REPORT INFORMATION
  Report Type: Spontaneous
  Country: US (occurrence: US)
  Receive Date: 20180907
  Receipt Date: 20180913
  Transmission Date: 20181010
  Serious: Yes (Hospitalization)
  Sender: FDA-Public Use
  Company Number: US-ACTELION-A-US2018-178288

PATIENT
  Age: 55 Year
  Sex: Male

DRUGS (3)
  1. REVATIO [Concomitant]
     Active Substance: SILDENAFIL CITRATE
     Dosage: 80 MG, TID
     Route: 065
     Dates: start: 20130329
  2. REMODULIN [Concomitant]
     Active Substance: TREPROSTINIL
     Dosage: 40 NG/KG, PER MIN
     Route: 042
     Dates: start: 20160809
  3. OPSUMIT [Suspect]
     Active Substance: MACITENTAN
     Indication: PULMONARY ARTERIAL HYPERTENSION
     Dosage: 10 MG, QD
     Route: 048
     Dates: start: 20160523

REACTIONS (3)
  - Device dislocation [Recovered/Resolved]
  - Incorrect dose administered [Unknown]
  - Pulmonary oedema [Unknown]

NARRATIVE: CASE EVENT DATE: 20180827
